FAERS Safety Report 7273406-3 (Version None)
Quarter: 2011Q1

REPORT INFORMATION
  Report Type: 
  Country: None (occurrence: None)
  Receive Date: 20110203
  Receipt Date: 20100910
  Transmission Date: 20110831
  Serious: No
  Sender: FDA-Public Use
  Company Number: US-ABBOTT-10P-163-0670933-00

PATIENT
  Age: 46 Year
  Sex: Male

DRUGS (2)
  1. SYNTHROID [Suspect]
     Indication: HYPOTHYROIDISM
     Dates: start: 20020101
  2. ENSURE [Concomitant]
     Indication: SUPPLEMENTATION THERAPY

REACTIONS (6)
  - NAUSEA [None]
  - ABDOMINAL PAIN [None]
  - ABDOMINAL DISCOMFORT [None]
  - COELIAC DISEASE [None]
  - DIARRHOEA [None]
  - LACTOSE INTOLERANCE [None]
